FAERS Safety Report 18697849 (Version 1)
Quarter: 2021Q1

REPORT INFORMATION
  Report Type: Spontaneous
  Country: US (occurrence: US)
  Receive Date: 20210104
  Receipt Date: 20210104
  Transmission Date: 20210419
  Serious: Yes (Other)
  Sender: FDA-Public Use
  Company Number: US-TOLMAR, INC.-20US024719

PATIENT
  Age: 67 Year
  Sex: Male

DRUGS (2)
  1. RADIATION [Concomitant]
     Active Substance: RADIATION THERAPY
     Indication: PROSTATE CANCER
  2. ELIGARD [Suspect]
     Active Substance: LEUPROLIDE ACETATE
     Indication: PROSTATE CANCER
     Dosage: UNK
     Route: 065

REACTIONS (2)
  - Cytomegalovirus colitis [Unknown]
  - Colonic abscess [Unknown]
